FAERS Safety Report 6627174-6 (Version None)
Quarter: 2010Q1

REPORT INFORMATION
  Report Type: 
  Country: None (occurrence: None)
  Receive Date: 20100311
  Receipt Date: 20091122
  Transmission Date: 20100710
  Serious: No
  Sender: FDA-Public Use
  Company Number: A0824180A

PATIENT
  Age: 31 Year
  Sex: Male

DRUGS (1)
  1. NICORETTE [Suspect]

REACTIONS (1)
  - ABDOMINAL PAIN UPPER [None]
